FAERS Safety Report 7495651-4 (Version None)
Quarter: 2011Q2

REPORT INFORMATION
  Report Type: 
  Country: None (occurrence: None)
  Receive Date: 20110523
  Receipt Date: 20110517
  Transmission Date: 20111010
  Serious: No
  Sender: FDA-Public Use
  Company Number: US-PFIZER INC-2011106543

PATIENT
  Sex: Male
  Weight: 39.002 kg

DRUGS (2)
  1. ZYRTEC [Concomitant]
     Dosage: 5 MG, UNK
  2. GENOTROPIN [Suspect]
     Dosage: 1.6 MG, 7 DAYS A WEEK
     Route: 058

REACTIONS (1)
  - HEADACHE [None]
